FAERS Safety Report 7516203-3 (Version None)
Quarter: 2011Q2

REPORT INFORMATION
  Report Type: 
  Country: None (occurrence: None)
  Receive Date: 20110601
  Receipt Date: 20110525
  Transmission Date: 20111010
  Serious: Yes (Other)
  Sender: FDA-Public Use
  Company Number: US-SANOFI-AVENTIS-2011SA033374

PATIENT
  Sex: Male

DRUGS (2)
  1. LANTUS [Suspect]
     Dosage: SLIDING SCALE DOSE:100 UNIT(S)
     Route: 058
     Dates: start: 20100101
  2. LANTUS [Suspect]
     Dosage: 15-20 UNITS
     Route: 058
     Dates: start: 20100101

REACTIONS (3)
  - ABDOMINAL DISTENSION [None]
  - GASTROINTESTINAL MOTILITY DISORDER [None]
  - DIABETES MELLITUS INADEQUATE CONTROL [None]
